FAERS Safety Report 23554480 (Version 1)
Quarter: 2024Q1

REPORT INFORMATION
  Report Type: Spontaneous
  Country: US (occurrence: None)
  Receive Date: 20240222
  Receipt Date: 20240222
  Transmission Date: 20240409
  Serious: Yes (Hospitalization)
  Sender: FDA-Public Use
  Company Number: None

PATIENT
  Sex: Female

DRUGS (1)
  1. LENALIDOMIDE [Suspect]
     Active Substance: LENALIDOMIDE
     Indication: Plasma cell myeloma
     Dosage: TAKE L CAPSULE BY MOUTH L TIME A DAY FOR 21DAYS ON AND 7 DAYS OFF;
     Route: 048
     Dates: start: 202401

REACTIONS (3)
  - Peripheral swelling [None]
  - Diarrhoea [None]
  - Confusional state [None]
